FAERS Safety Report 8083335-3 (Version None)
Quarter: 2012Q1

REPORT INFORMATION
  Report Type: 
  Country: None (occurrence: None)
  Receive Date: 20120127
  Receipt Date: 20110113
  Transmission Date: 20120608
  Serious: No
  Sender: FDA-Public Use
  Company Number: US-ABBOTT-11P-163-0697598-00

PATIENT
  Age: 29 Year
  Sex: Female

DRUGS (3)
  1. BENTYL [Concomitant]
     Indication: PAIN
     Dosage: EVERY 6 HOURS AS NEEDED
  2. HUMIRA [Suspect]
     Indication: RHEUMATOID ARTHRITIS
     Dates: start: 20091001
  3. PHENERGAN [Concomitant]
     Indication: PAIN
     Dosage: EVERY 6 HOURS AS NEEDED

REACTIONS (1)
  - NASOPHARYNGITIS [None]
